FAERS Safety Report 6504927-6 (Version None)
Quarter: 2009Q4

REPORT INFORMATION
  Report Type: 
  Country: None (occurrence: None)
  Receive Date: 20091218
  Receipt Date: 20091214
  Transmission Date: 20100525
  Serious: Yes (Life-Threatening, Hospitalization)
  Sender: FDA-Public Use
  Company Number: AU-ROCHE-674404

PATIENT
  Age: 49 Year
  Sex: Male

DRUGS (5)
  1. DIAZEPAM [Suspect]
     Indication: DRUG USE FOR UNKNOWN INDICATION
     Dosage: 1 TIME, OVERDOSE
     Route: 065
  2. TRAMADOL HYDROCHLORIDE [Suspect]
     Indication: DRUG USE FOR UNKNOWN INDICATION
     Dosage: 1 TIME, OVERDOSE
     Route: 065
  3. MORPHINE SULFATE [Suspect]
     Indication: DRUG USE FOR UNKNOWN INDICATION
     Dosage: OVERDOSE
     Route: 065
  4. VERAPAMIL [Suspect]
     Indication: DRUG USE FOR UNKNOWN INDICATION
     Dosage: OVERDOSE
     Route: 065
  5. ALCOHOL [Suspect]
     Indication: DRUG USE FOR UNKNOWN INDICATION
     Dosage: OVERDSOSE
     Route: 065

REACTIONS (9)
  - ASTHENIA [None]
  - ATAXIA [None]
  - COMA SCALE ABNORMAL [None]
  - DISORIENTATION [None]
  - DYSARTHRIA [None]
  - HYPOTENSION [None]
  - INTENTIONAL OVERDOSE [None]
  - NODAL RHYTHM [None]
  - SOMNOLENCE [None]
